FAERS Safety Report 4433546-0 (Version None)
Quarter: 2004Q3

REPORT INFORMATION
  Report Type: 
  Country: None (occurrence: None)
  Receive Date: 20040824
  Receipt Date: 20040811
  Transmission Date: 20050211
  Serious: No
  Sender: FDA-Public Use
  Company Number: 04H-163-0270361-00

PATIENT
  Age: 42 Year
  Sex: Male

DRUGS (6)
  1. EPHEDRINE SULFATE INJECTION (EPHEDRINE SULFATE) (EPHEDRINE SULFATE) [Suspect]
     Indication: HYPOTENSION
     Dosage: 10 MG, ONCE, INTRAVENOUS
     Route: 042
  2. COCAINE [Suspect]
  3. MIDAZOLAM HCL [Concomitant]
  4. RINGER-LACTATE SOLUTION ^FRESENIUS^ [Concomitant]
  5. BUPIVACAINE [Concomitant]
  6. MORPHINE [Concomitant]

REACTIONS (4)
  - ACUTE MYOCARDIAL INFARCTION [None]
  - ARTERIOSPASM CORONARY [None]
  - DRUG INTERACTION [None]
  - VENTRICULAR TACHYCARDIA [None]
